FAERS Safety Report 4304169-9 (Version None)
Quarter: 2004Q1

REPORT INFORMATION
  Report Type: 
  Country: None (occurrence: None)
  Receive Date: 20040224
  Receipt Date: 20040212
  Transmission Date: 20041129
  Serious: Yes (Disabling)
  Sender: FDA-Public Use
  Company Number: 2004-DE-00742SI

PATIENT
  Age: 63 Year
  Sex: Male

DRUGS (10)
  1. SPIRIVA [Suspect]
     Indication: CHRONIC OBSTRUCTIVE AIRWAYS DISEASE
     Dosage: 18 MCG (18 MCG, 1 X 18 MCG)
     Route: 055
     Dates: start: 20030913, end: 20030930
  2. MINTRAN TTS (TTS) [Concomitant]
  3. CORVATON (RETARD) (TA) [Concomitant]
  4. TOREM (TA) [Concomitant]
  5. CALCIMAGON D3 (TAK) [Concomitant]
  6. SERETIDE (AEP) [Concomitant]
  7. DOSPIR (COMBIVENT / GFR/) (AEP) [Concomitant]
  8. PULMICORT BUDESONIDE) (AEP) [Concomitant]
  9. LEXOTANIL (TA) [Concomitant]
  10. DUSPATALIN RETARD (KAP) [Concomitant]

REACTIONS (7)
  - ANGINA PECTORIS [None]
  - ASTHMA [None]
  - BRONCHIAL IRRITATION [None]
  - LARYNX IRRITATION [None]
  - MALAISE [None]
  - TACHYCARDIA [None]
  - TREMOR [None]
